FAERS Safety Report 8535607 (Version 4)
Quarter: 2013Q1

REPORT INFORMATION
  Report Type: Spontaneous
  Country: US (occurrence: US)
  Receive Date: 20120430
  Receipt Date: 20130116
  Transmission Date: 20140127
  Serious: Yes (Other)
  Sender: FDA-Public Use
  Company Number: US-PFIZER INC-2012104331

PATIENT
  Sex: Female

DRUGS (5)
  1. LYRICA [Suspect]
     Dosage: 75 MG, 1X/DAY
     Route: 048
  2. LYRICA [Suspect]
     Dosage: 25 MG, 2X/DAY
     Route: 048
  3. LYRICA [Suspect]
     Dosage: 50 MG, 1X/DAY
     Route: 048
  4. MELOXICAM [Concomitant]
     Indication: RHEUMATOID ARTHRITIS
     Dosage: UNK
  5. LIPITOR [Concomitant]

REACTIONS (10)
  - Systemic lupus erythematosus [Unknown]
  - Abasia [Unknown]
  - Activities of daily living impaired [Unknown]
  - Abdominal pain [Not Recovered/Not Resolved]
  - Off label use [Unknown]
  - Drug effect incomplete [Unknown]
  - Pain [Not Recovered/Not Resolved]
  - Arthralgia [Unknown]
  - Malaise [Unknown]
  - Pain in extremity [Unknown]
